FAERS Safety Report 13523448 (Version 1)
Quarter: 2017Q2

REPORT INFORMATION
  Report Type: Spontaneous
  Country: US (occurrence: US)
  Receive Date: 20170508
  Receipt Date: 20170508
  Transmission Date: 20170830
  Serious: No
  Sender: FDA-Public Use
  Company Number: US-VIFOR (INTERNATIONAL) INC.-VIT-2017-03837

PATIENT
  Sex: Female

DRUGS (20)
  1. HYDRALAZINE HYDROCHLORIDE. [Concomitant]
     Active Substance: HYDRALAZINE HYDROCHLORIDE
  2. NEURONTIN [Concomitant]
     Active Substance: GABAPENTIN
  3. NORVASC [Concomitant]
     Active Substance: AMLODIPINE BESYLATE
  4. NOVOLIN 70/30 [Concomitant]
     Active Substance: INSULIN HUMAN
  5. VELTASSA [Suspect]
     Active Substance: PATIROMER
  6. MINOXIDIL. [Concomitant]
     Active Substance: MINOXIDIL
  7. CHLORTALIDONE [Concomitant]
     Active Substance: CHLORTHALIDONE
  8. APIDRA [Concomitant]
     Active Substance: INSULIN GLULISINE
  9. ACETYLSALICYLIC ACID [Concomitant]
     Active Substance: ASPIRIN
  10. FUROSEMIDE. [Concomitant]
     Active Substance: FUROSEMIDE
  11. AZITHROMYCIN ANHYDROUS. [Concomitant]
     Active Substance: AZITHROMYCIN ANHYDROUS
  12. BUMETANIDE. [Concomitant]
     Active Substance: BUMETANIDE
  13. METOLAZONE. [Concomitant]
     Active Substance: METOLAZONE
  14. ISOSORBIDE DINITRATE. [Concomitant]
     Active Substance: ISOSORBIDE DINITRATE
  15. LANTUS [Concomitant]
     Active Substance: INSULIN GLARGINE
  16. LYRICA [Concomitant]
     Active Substance: PREGABALIN
  17. NOVOLOG MIX 70/30 [Concomitant]
     Active Substance: INSULIN ASPART
  18. PERCOCET [Concomitant]
     Active Substance: ACETAMINOPHEN\OXYCODONE HYDROCHLORIDE
  19. VELTASSA [Suspect]
     Active Substance: PATIROMER
     Indication: HYPERKALAEMIA
     Route: 048
     Dates: start: 20161217
  20. NIFEDIPINE. [Concomitant]
     Active Substance: NIFEDIPINE

REACTIONS (2)
  - Viral upper respiratory tract infection [Unknown]
  - Inappropriate schedule of drug administration [Unknown]
